FAERS Safety Report 11727097 (Version 8)
Quarter: 2017Q1

REPORT INFORMATION
  Report Type: Spontaneous
  Country: US (occurrence: US)
  Receive Date: 20151112
  Receipt Date: 20170307
  Transmission Date: 20170428
  Serious: Yes (Hospitalization, Disabling, Other)
  Sender: FDA-Public Use
  Company Number: US-009507513-1511USA006007

PATIENT
  Sex: Female
  Weight: 66.67 kg

DRUGS (4)
  1. FOSAMAX [Suspect]
     Active Substance: ALENDRONATE SODIUM
     Indication: OSTEOPOROSIS
     Dosage: 10 MG, QD
     Route: 048
     Dates: start: 1997
  2. FOSAMAX [Suspect]
     Active Substance: ALENDRONATE SODIUM
     Indication: OSTEOPOROSIS PROPHYLAXIS
     Dosage: 70 MG, QW
     Route: 048
     Dates: end: 2007
  3. VITAMIN D [Concomitant]
     Active Substance: CHOLECALCIFEROL
     Indication: PRODUCT USED FOR UNKNOWN INDICATION
     Dosage: 2000 IU, UNKNOWN
     Route: 065
     Dates: start: 1970
  4. CALCIUM (UNSPECIFIED) [Concomitant]
     Active Substance: CALCIUM
     Indication: PRODUCT USED FOR UNKNOWN INDICATION
     Dosage: 1200 IU, UNKNOWN
     Route: 065
     Dates: start: 1970

REACTIONS (15)
  - Blood cholesterol increased [Unknown]
  - Ankle fracture [Unknown]
  - Sinus tachycardia [Unknown]
  - Femur fracture [Unknown]
  - Hypertension [Unknown]
  - Osteopenia [Unknown]
  - Lung disorder [Unknown]
  - Anaemia postoperative [Recovering/Resolving]
  - Femur fracture [Unknown]
  - Limb asymmetry [Unknown]
  - Osteoporosis [Not Recovered/Not Resolved]
  - Femur fracture [Not Recovered/Not Resolved]
  - Rheumatoid arthritis [Unknown]
  - Stress fracture [Not Recovered/Not Resolved]
  - Forearm fracture [Unknown]

NARRATIVE: CASE EVENT DATE: 2005
